FAERS Safety Report 11839277 (Version 1)
Quarter: 2015Q4

REPORT INFORMATION
  Report Type: Spontaneous
  Country: US (occurrence: US)
  Receive Date: 20151216
  Receipt Date: 20151216
  Transmission Date: 20160305
  Serious: No
  Sender: FDA-Public Use
  Company Number: US-TEVA-592982USA

PATIENT
  Age: 61 Year
  Sex: Female

DRUGS (1)
  1. OXYBUTYNIN [Suspect]
     Active Substance: OXYBUTYNIN
     Indication: INCONTINENCE
     Dosage: 20 MG A DAY
     Dates: start: 20150814

REACTIONS (2)
  - Drug ineffective [Unknown]
  - Bladder pain [Unknown]

NARRATIVE: CASE EVENT DATE: 20150814
